FAERS Safety Report 4815144-X (Version None)
Quarter: 2005Q4

REPORT INFORMATION
  Report Type: 
  Country: None (occurrence: None)
  Receive Date: 20051026
  Receipt Date: 20051019
  Transmission Date: 20060501
  Serious: Yes (Disabling)
  Sender: FDA-Public Use
  Company Number: 2005-09-0110

PATIENT
  Age: 56 Year
  Sex: Female
  Weight: 62 kg

DRUGS (7)
  1. VIRAFERONPEG [Suspect]
     Indication: HEPATITIS C
     Dosage: 1.5MCG/KG/QW
     Dates: start: 20010618, end: 20020618
  2. REBETOL [Suspect]
     Indication: HEPATITIS C
     Dosage: 800 MG QD ORAL
     Route: 048
     Dates: start: 20010618, end: 20020618
  3. DETENSIEL [Concomitant]
  4. HYZAAR [Concomitant]
  5. LEVOTHYROX [Concomitant]
  6. GIKOR [Concomitant]
  7. RIVOTRIL [Concomitant]

REACTIONS (6)
  - ASTHENIA [None]
  - MUSCLE ATROPHY [None]
  - MYALGIA [None]
  - PYREXIA [None]
  - TOOTH LOSS [None]
  - WEIGHT DECREASED [None]
